FAERS Safety Report 7347928-0 (Version None)
Quarter: 2011Q1

REPORT INFORMATION
  Report Type: 
  Country: None (occurrence: None)
  Receive Date: 20110311
  Receipt Date: 20110303
  Transmission Date: 20110831
  Serious: No
  Sender: FDA-Public Use
  Company Number: US-PFIZER INC-2011048193

PATIENT
  Age: 54 Year
  Sex: Female
  Weight: 68.027 kg

DRUGS (1)
  1. IBUPROFEN (ADVIL) [Suspect]
     Indication: MUSCULOSKELETAL PAIN
     Dosage: 2 UNK, 1X/DAY
     Route: 048
     Dates: end: 20040101

REACTIONS (1)
  - BLOOD PRESSURE INCREASED [None]
